FAERS Safety Report 17514115 (Version 2)
Quarter: 2020Q1

REPORT INFORMATION
  Report Type: Spontaneous
  Country: TR (occurrence: TR)
  Receive Date: 20200306
  Receipt Date: 20200312
  Transmission Date: 20200409
  Serious: Yes (Other)
  Sender: FDA-Public Use
  Company Number: TR-AMGEN-TURSP2020020553

PATIENT
  Age: 54 Year
  Sex: Female

DRUGS (1)
  1. ENBREL [Suspect]
     Active Substance: ETANERCEPT
     Indication: PRODUCT USED FOR UNKNOWN INDICATION
     Dosage: 50 MILLIGRAM
     Route: 065
     Dates: start: 201704

REACTIONS (8)
  - Pain [Not Recovered/Not Resolved]
  - Product administration error [Unknown]
  - Suspected counterfeit product [Unknown]
  - Mobility decreased [Unknown]
  - Sweating fever [Unknown]
  - Drug ineffective [Unknown]
  - Product storage error [Unknown]
  - Nervousness [Unknown]
